FAERS Safety Report 7462572-2 (Version None)
Quarter: 2011Q2

REPORT INFORMATION
  Report Type: 
  Country: None (occurrence: None)
  Receive Date: 20110506
  Receipt Date: 20110421
  Transmission Date: 20111010
  Serious: No
  Sender: FDA-Public Use
  Company Number: US-B.I. PHARMACEUTICALS,INC./RIDGEFIELD-2011-BP-06733BP

PATIENT
  Sex: Female

DRUGS (4)
  1. WATER PILL [Concomitant]
  2. BLOOD PRESSURE MEDICATION [Concomitant]
  3. PRADAXA [Suspect]
     Indication: ATRIAL FIBRILLATION
     Dosage: 300 MG
     Route: 048
     Dates: start: 20110212
  4. VITAMINS AND MINERALS [Concomitant]

REACTIONS (3)
  - INFLUENZA [None]
  - OROPHARYNGEAL PAIN [None]
  - EPISTAXIS [None]
